FAERS Safety Report 5382815-9 (Version None)
Quarter: 2007Q3

REPORT INFORMATION
  Report Type: 
  Country: None (occurrence: None)
  Receive Date: 20070710
  Receipt Date: 20070626
  Transmission Date: 20080115
  Serious: Yes (Hospitalization)
  Sender: FDA-Public Use
  Company Number: US-ELI_LILLY_AND_COMPANY-US200704005448

PATIENT
  Age: 56 Year
  Sex: Female
  Weight: 73.469 kg

DRUGS (7)
  1. FORTEO [Suspect]
     Indication: OSTEOPOROSIS
     Dosage: 20 UG, DAILY (1/D)
     Dates: start: 20070423
  2. FORTEO [Suspect]
     Dosage: 20 UG, DAILY (1/D)
     Dates: start: 20060901, end: 20070418
  3. PROVENTIL                               /USA/ [Concomitant]
  4. CLARITIN [Concomitant]
  5. ASMANEX TWISTHALER [Concomitant]
  6. TRANXENE [Concomitant]
  7. VESICARE [Concomitant]

REACTIONS (4)
  - CYSTITIS [None]
  - DIVERTICULITIS [None]
  - INTERVERTEBRAL DISC DISORDER [None]
  - MUSCULOSKELETAL PAIN [None]
